FAERS Safety Report 8614187 (Version 2)
Quarter: 2012Q4

REPORT INFORMATION
  Report Type: 
  Country: US (occurrence: US)
  Receive Date: 20120614
  Receipt Date: 20121219
  Transmission Date: 20130627
  Serious: Yes (Other)
  Sender: FDA-Public Use
  Company Number: US-ASTRAZENECA-2011SE29216

PATIENT
  Age: 78 Year
  Sex: Female

DRUGS (46)
  1. TOPROL XL [Suspect]
     Route: 048
  2. SEROQUEL [Suspect]
     Route: 048
  3. OMEPRAZOLE [Suspect]
     Route: 048
  4. OMEPRAZOLE [Suspect]
     Route: 048
  5. MIDODRINE [Concomitant]
     Route: 048
  6. DIAZEPAM [Concomitant]
     Indication: ANXIETY
     Route: 048
  7. DIAZEPAM [Concomitant]
     Indication: ANXIETY
     Route: 048
  8. TRAMADOL [Concomitant]
     Indication: PAIN
     Route: 048
  9. LEVETIRACETAM [Concomitant]
     Route: 048
  10. ATORVASTATIN [Concomitant]
     Route: 048
  11. SUCRALFATE [Concomitant]
     Route: 048
  12. SUCRALFATE [Concomitant]
     Route: 048
  13. ARICEPT [Concomitant]
     Route: 048
  14. DONEPEZIL [Concomitant]
     Route: 048
  15. COMBIVENT [Concomitant]
     Dosage: 18 MCG-103 MCG, TWO PUFFS, FOUR TIMES A DAY
     Route: 055
  16. OXYCODONE [Concomitant]
     Dosage: EVERY SIX TO EIGHT HOURS
     Route: 048
  17. NYSTATIN [Concomitant]
     Dosage: 100,000 UNITS/ML, 5 ML, FOUR TIMES A DAY
     Route: 048
  18. FIORICET [Concomitant]
     Indication: PAIN
     Route: 048
  19. FIORICET [Concomitant]
     Indication: HEADACHE
     Route: 048
  20. FIORICET [Concomitant]
     Indication: PAIN
     Route: 048
  21. FIORICET [Concomitant]
     Indication: HEADACHE
     Route: 048
  22. AMOXIL [Concomitant]
     Route: 048
  23. XOPENEX [Concomitant]
     Dosage: 0.63 MG/3 ML, NEB, THREE TIMES A DAY
     Route: 055
  24. SYNTHROID [Concomitant]
     Route: 048
  25. METOPROLOL TARTRATE [Concomitant]
     Route: 048
  26. LEXAPRO [Concomitant]
     Route: 048
  27. LEXAPRO [Concomitant]
     Route: 048
  28. VENTOLIN HFA [Concomitant]
     Dosage: TWO PUFFS, FOUR TIMES A DAY
     Route: 055
  29. ZOLOFT [Concomitant]
     Route: 048
  30. DETROL LA [Concomitant]
     Route: 048
  31. LIPITOR [Concomitant]
     Route: 048
  32. AMOXICILLIN [Concomitant]
     Route: 048
  33. ZONISAMIDE [Concomitant]
     Dosage: DAW
     Route: 048
  34. ZONISAMIDE [Concomitant]
     Route: 048
  35. PROTONIX [Concomitant]
     Route: 048
  36. KEPPRA [Concomitant]
     Route: 048
  37. VESICARE [Concomitant]
     Route: 048
  38. BELLADONNA /  ERGOTAMINE/ PHENOBARBITAL [Concomitant]
     Route: 048
  39. LASIX [Concomitant]
     Route: 048
  40. ATIVAN [Concomitant]
     Route: 048
  41. ISOSORBIDE MONONITRATE [Concomitant]
     Dosage: DAW
     Route: 048
  42. ASPIRIN [Concomitant]
     Route: 048
  43. VALIUM [Concomitant]
     Dosage: DAW
     Route: 048
  44. FLEXERIL [Concomitant]
     Dosage: DAW
  45. ALBUTEROL [Concomitant]
     Dosage: TWO PUFFS, DAW
  46. PREMARIN [Concomitant]
     Dosage: DAW

REACTIONS (3)
  - Convulsion [Unknown]
  - Malaise [Unknown]
  - Blood pressure decreased [Unknown]
